FAERS Safety Report 9869952 (Version 1)
Quarter: 2014Q1

REPORT INFORMATION
  Report Type: Spontaneous
  Country: DE (occurrence: DE)
  Receive Date: 20140205
  Receipt Date: 20140205
  Transmission Date: 20141002
  Serious: Yes (Other)
  Sender: FDA-Public Use
  Company Number: DE-SA-2014SA013494

PATIENT
  Age: 75 Year
  Sex: Male

DRUGS (6)
  1. ENOXAPARIN SODIUM [Suspect]
     Indication: THROMBOSIS PROPHYLAXIS
     Route: 065
     Dates: start: 201308, end: 201308
  2. ENOXAPARIN SODIUM [Suspect]
     Indication: OFF LABEL USE
     Route: 065
     Dates: start: 201308, end: 201308
  3. LOSARTAN [Concomitant]
  4. HYDROCHLOROTHIAZIDE [Concomitant]
  5. BISOPROLOL [Concomitant]
  6. MARCUMAR [Concomitant]

REACTIONS (4)
  - Cerebrovascular accident [Unknown]
  - Syncope [Unknown]
  - Pain [Unknown]
  - Off label use [Unknown]
